FAERS Safety Report 4682656-1 (Version None)
Quarter: 2005Q2

REPORT INFORMATION
  Report Type: 
  Country: None (occurrence: None)
  Receive Date: 20050606
  Receipt Date: 20050324
  Transmission Date: 20051028
  Serious: Yes (Disabling)
  Sender: FDA-Public Use
  Company Number: JP-GLAXOSMITHKLINE-B0375986A

PATIENT
  Age: 61 Year
  Sex: Female

DRUGS (2)
  1. FLUTIDE [Suspect]
     Indication: ASTHMA
     Dosage: 100MCG TWICE PER DAY
     Route: 055
     Dates: start: 20011101, end: 20030601
  2. UNIPHYL [Concomitant]
     Indication: ASTHMA
     Route: 048

REACTIONS (2)
  - ANOSMIA [None]
  - PAROSMIA [None]
